FAERS Safety Report 21405128 (Version 12)
Quarter: 2023Q1

REPORT INFORMATION
  Report Type: Report from Study
  Country: CA (occurrence: CA)
  Receive Date: 20221004
  Receipt Date: 20230105
  Transmission Date: 20230418
  Serious: Yes (Life-Threatening, Hospitalization, Other)
  Sender: FDA-Public Use
  Company Number: CA-BEH-2022150295

PATIENT
  Age: 73 Year
  Sex: Female
  Weight: 67 kg

DRUGS (10)
  1. HIZENTRA [Suspect]
     Active Substance: HUMAN IMMUNOGLOBULIN G
     Indication: Primary immunodeficiency syndrome
     Dosage: 8 GRAM, QOW
     Route: 065
     Dates: start: 20220804
  2. HIZENTRA [Suspect]
     Active Substance: HUMAN IMMUNOGLOBULIN G
     Dosage: 16 GRAM, QOW
     Route: 065
     Dates: start: 20220804
  3. HIZENTRA [Suspect]
     Active Substance: HUMAN IMMUNOGLOBULIN G
     Dosage: 16 GRAM, BIW
     Route: 065
     Dates: start: 20220804
  4. HIZENTRA [Suspect]
     Active Substance: HUMAN IMMUNOGLOBULIN G
     Dosage: 16 GRAM, QOW
     Route: 065
     Dates: start: 20220804
  5. HIZENTRA [Suspect]
     Active Substance: HUMAN IMMUNOGLOBULIN G
     Dosage: 16 GRAM, QW
     Route: 058
     Dates: start: 20220804
  6. HIZENTRA [Suspect]
     Active Substance: HUMAN IMMUNOGLOBULIN G
     Dosage: UNK
     Route: 065
     Dates: start: 20221202
  7. HIZENTRA [Suspect]
     Active Substance: HUMAN IMMUNOGLOBULIN G
     Dosage: 12 GRAM, QW
     Route: 065
     Dates: start: 20220804
  8. BISOPROLOL [Concomitant]
     Active Substance: BISOPROLOL
  9. DEXILANT [Concomitant]
     Active Substance: DEXLANSOPRAZOLE
  10. ZOPICLONE [Concomitant]
     Active Substance: ZOPICLONE

REACTIONS (21)
  - Asthenia [Recovering/Resolving]
  - Confusional state [Unknown]
  - General physical health deterioration [Unknown]
  - Malaise [Unknown]
  - No adverse event [Unknown]
  - Product dose omission issue [Unknown]
  - Malaise [Unknown]
  - Somnolence [Recovered/Resolved]
  - Decreased appetite [Recovering/Resolving]
  - Cardiac failure congestive [Unknown]
  - Platelet count decreased [Unknown]
  - Dyspnoea [Not Recovered/Not Resolved]
  - Respiratory rate increased [Not Recovered/Not Resolved]
  - COVID-19 [Unknown]
  - Sepsis [Unknown]
  - Pneumonia aspiration [Unknown]
  - No adverse event [Unknown]
  - Product dose omission issue [Unknown]
  - Neutrophil count decreased [Unknown]
  - Shock [Unknown]
  - Serum ferritin increased [Unknown]

NARRATIVE: CASE EVENT DATE: 20220921
